FAERS Safety Report 18164163 (Version 1)
Quarter: 2020Q3

REPORT INFORMATION
  Report Type: Spontaneous
  Country: DE (occurrence: DE)
  Receive Date: 20200818
  Receipt Date: 20200818
  Transmission Date: 20201103
  Serious: Yes (Hospitalization)
  Sender: FDA-Public Use
  Company Number: DE-MYLANLABS-2020M1070913

PATIENT
  Age: 56 Year
  Sex: Male
  Weight: 112 kg

DRUGS (11)
  1. SPIRONOLACTON [Concomitant]
     Active Substance: SPIRONOLACTONE
     Dosage: 100 MILLIGRAM, BID (100 MG, 1?1?0?0)
  2. HYDROMORPHONE [Suspect]
     Active Substance: HYDROMORPHONE
     Indication: PRODUCT USED FOR UNKNOWN INDICATION
     Dosage: 1.3 MILLIGRAM, 4X
  3. PANTOPRAZOL                        /01263201/ [Concomitant]
     Active Substance: PANTOPRAZOLE
     Dosage: 20 MG, 1?0?0?0
  4. LEVOTHYROXINUM NATRICUM [Concomitant]
     Dosage: 75 ?G, 1?0?0?0
  5. HYDROMORPHONE [Suspect]
     Active Substance: HYDROMORPHONE
     Dosage: 2.6 MG, 4X
  6. METAMIZOL                          /06276701/ [Suspect]
     Active Substance: METAMIZOLE
     Indication: PRODUCT USED FOR UNKNOWN INDICATION
     Dosage: 1 GRAM, 4X
  7. LACTULOSE. [Concomitant]
     Active Substance: LACTULOSE
     Dosage: 25 ML, TID, 1?1?1?0
  8. RIFAXIMIN. [Concomitant]
     Active Substance: RIFAXIMIN
     Dosage: 550 MG, 1?0?1?0
  9. FENTANYL. [Suspect]
     Active Substance: FENTANYL
     Indication: PRODUCT USED FOR UNKNOWN INDICATION
     Dosage: 50 ?G, LETZTER WECHSEL 07032020
  10. TORASEMID [Concomitant]
     Active Substance: TORSEMIDE
     Dosage: 50 MG, QD, 1?0?0?0
  11. MCP [Concomitant]
     Active Substance: METOCLOPRAMIDE HYDROCHLORIDE
     Dosage: 10 MILLIGRAM, 2X

REACTIONS (5)
  - Condition aggravated [Unknown]
  - Product prescribing error [Unknown]
  - Abdominal pain [Unknown]
  - Sciatica [Unknown]
  - Abdominal pain upper [Unknown]
